FAERS Safety Report 11690397 (Version 1)
Quarter: 2015Q4

REPORT INFORMATION
  Report Type: Spontaneous
  Country: ZA (occurrence: ZA)
  Receive Date: 20151102
  Receipt Date: 20151102
  Transmission Date: 20160304
  Serious: Yes (Death)
  Sender: FDA-Public Use
  Company Number: ZA-BAUSCH-BL-2015-025590

PATIENT
  Age: 67 Year
  Sex: Male

DRUGS (1)
  1. TAMBOCOR [Suspect]
     Active Substance: FLECAINIDE ACETATE
     Indication: POST PROCEDURAL COMPLICATION
     Route: 048

REACTIONS (1)
  - Arrhythmia [Fatal]
